FAERS Safety Report 25224881 (Version 4)
Quarter: 2025Q2

REPORT INFORMATION
  Report Type: Spontaneous
  Country: UY (occurrence: UY)
  Receive Date: 20250422
  Receipt Date: 20250506
  Transmission Date: 20250717
  Serious: No
  Sender: PFIZER
  Company Number: UY-PFIZER INC-202500083339

PATIENT
  Age: 17 Year
  Sex: Female

DRUGS (1)
  1. ENBREL [Suspect]
     Active Substance: ETANERCEPT
     Indication: Juvenile idiopathic arthritis
     Dosage: 50 MG, WEEKLY
     Dates: start: 20230712, end: 20250207

REACTIONS (2)
  - Device mechanical issue [Not Recovered/Not Resolved]
  - Drug dose omission by device [Not Recovered/Not Resolved]

NARRATIVE: CASE EVENT DATE: 20250301
